FAERS Safety Report 8298117-7 (Version None)
Quarter: 2012Q2

REPORT INFORMATION
  Report Type: 
  Country: None (occurrence: None)
  Receive Date: 20120419
  Receipt Date: 20120411
  Transmission Date: 20120825
  Serious: Yes (Death)
  Sender: FDA-Public Use
  Company Number: US-ROCHE-1034426

PATIENT
  Sex: Male
  Weight: 81.266 kg

DRUGS (4)
  1. ZOMETA [Concomitant]
  2. AVASTIN [Suspect]
     Indication: PRODUCT USED FOR UNKNOWN INDICATION
  3. SUTENT [Concomitant]
  4. NEXAVAR [Concomitant]

REACTIONS (1)
  - DEATH [None]
